FAERS Safety Report 6005393-X (Version None)
Quarter: 2008Q4

REPORT INFORMATION
  Report Type: 
  Country: None (occurrence: None)
  Receive Date: 20081216
  Receipt Date: 20081212
  Transmission Date: 20090506
  Serious: Yes (Other)
  Sender: FDA-Public Use
  Company Number: FR-BAUSCH-2008BL005246

PATIENT
  Age: 64 Year
  Sex: Female

DRUGS (2)
  1. CARTEOL LP 2% COLLYRE EN SOLUTION A LIBERATION PROLONGEE [Suspect]
     Indication: GLAUCOMA
     Route: 047
     Dates: start: 20081201, end: 20081201
  2. XALATAN /SWE/ [Concomitant]
     Indication: INTRAOCULAR PRESSURE INCREASED
     Route: 047

REACTIONS (1)
  - SYSTEMIC LUPUS ERYTHEMATOSUS [None]
